FAERS Safety Report 6613367-0 (Version None)
Quarter: 2010Q1

REPORT INFORMATION
  Report Type: 
  Country: None (occurrence: None)
  Receive Date: 20100224
  Receipt Date: 20090827
  Transmission Date: 20100710
  Serious: No
  Sender: FDA-Public Use
  Company Number: 2009-00574

PATIENT
  Age: 57 Year
  Sex: Female
  Weight: 49.8957 kg

DRUGS (5)
  1. ZICAM COLD REMEDY GEL SWABS [Suspect]
     Dosage: SPORADIC - SPORADIC; 3 - 4 YRS AGO - 06/20/2009
     Dates: end: 20090620
  2. NEXIUM [Concomitant]
  3. MAXZIDE [Concomitant]
  4. POTASSIUM CHLORIDE [Concomitant]
  5. ZYRTEC [Concomitant]

REACTIONS (1)
  - ANOSMIA [None]
